FAERS Safety Report 4698182-X (Version None)
Quarter: 2005Q2

REPORT INFORMATION
  Report Type: 
  Country: None (occurrence: None)
  Receive Date: 20050621
  Receipt Date: 20050609
  Transmission Date: 20051028
  Serious: Yes (Hospitalization)
  Sender: FDA-Public Use
  Company Number: 2005087277

PATIENT
  Sex: Female
  Weight: 54.4316 kg

DRUGS (1)
  1. DETROL LA [Suspect]
     Indication: HYPERTONIC BLADDER
     Dosage: ORAL
     Route: 048

REACTIONS (6)
  - BLADDER PROLAPSE [None]
  - DRUG INEFFECTIVE [None]
  - DRY MOUTH [None]
  - POLLAKIURIA [None]
  - POST PROCEDURAL COMPLICATION [None]
  - UTERINE PROLAPSE [None]
